FAERS Safety Report 26006301 (Version 1)
Quarter: 2025Q4

REPORT INFORMATION
  Report Type: Spontaneous
  Country: EU (occurrence: EU)
  Receive Date: 20251106
  Receipt Date: 20251106
  Transmission Date: 20260118
  Serious: Yes (Death, Hospitalization, Other)
  Sender: INSUD PHARMA
  Company Number: EU-002147023-NVSC2025NO155378

PATIENT
  Age: 69 Year
  Sex: Female

DRUGS (7)
  1. FULVESTRANT [Suspect]
     Active Substance: FULVESTRANT
     Indication: Metastases to bone
     Dosage: UNK
     Route: 065
  2. ABEMACICLIB [Suspect]
     Active Substance: ABEMACICLIB
     Indication: Metastases to bone
     Dosage: UNK
     Route: 065
  3. PALBOCICLIB [Suspect]
     Active Substance: PALBOCICLIB
     Indication: Metastases to bone
     Dosage: UNK
     Route: 065
  4. CAPECITABINE [Suspect]
     Active Substance: CAPECITABINE
     Indication: Product used for unknown indication
     Dosage: UNK
     Route: 065
     Dates: start: 202410
  5. ERIBULIN [Suspect]
     Active Substance: ERIBULIN
     Indication: Product used for unknown indication
     Dosage: UNK
     Route: 065
     Dates: start: 202411, end: 202503
  6. ERIBULIN [Suspect]
     Active Substance: ERIBULIN
     Dosage: UNK
     Route: 065
     Dates: start: 202508
  7. DEXAMETHASONE [Suspect]
     Active Substance: DEXAMETHASONE
     Indication: Product used for unknown indication
     Dosage: UNK
     Route: 065

REACTIONS (15)
  - Metastases to bone [Fatal]
  - Mania [Unknown]
  - Aggression [Unknown]
  - Pneumocystis jirovecii pneumonia [Unknown]
  - Pneumonitis [Unknown]
  - Angina pectoris [Unknown]
  - Metastases to central nervous system [Unknown]
  - Generalised tonic-clonic seizure [Unknown]
  - Metastases to liver [Unknown]
  - Transaminases increased [Unknown]
  - Metastases to lung [Unknown]
  - Hemiparesis [Unknown]
  - Stomatitis [Unknown]
  - Pseudocirrhosis [Unknown]
  - Hepatic steatosis [Unknown]

NARRATIVE: CASE EVENT DATE: 20220101
